FAERS Safety Report 4432295-2 (Version None)
Quarter: 2004Q3

REPORT INFORMATION
  Report Type: 
  Country: None (occurrence: None)
  Receive Date: 20040820
  Receipt Date: 20040806
  Transmission Date: 20050211
  Serious: Yes (Hospitalization)
  Sender: FDA-Public Use
  Company Number: 2004IM000794

PATIENT
  Age: 54 Year
  Sex: Female
  Weight: 63 kg

DRUGS (7)
  1. ACTIMMUNE [Suspect]
     Indication: HEPATITIS C
     Dosage: 100 UG; TIW; SUBCUTANEOUS
     Route: 058
     Dates: start: 20040405
  2. PEG INTERFERON ALPHA 2A [Suspect]
     Indication: HEPATITIS C
     Dosage: 180 UG; QW; SUBCUTANEOUS
     Route: 058
     Dates: start: 20040405
  3. RIBAVIRIN [Concomitant]
  4. LEXAPRO [Concomitant]
  5. WELLBUTRIN [Concomitant]
  6. ZOCOR [Concomitant]
  7. AMBIEN [Concomitant]

REACTIONS (2)
  - CHEST PAIN [None]
  - DYSPNOEA [None]
